FAERS Safety Report 6412737-3 (Version None)
Quarter: 2009Q4

REPORT INFORMATION
  Report Type: 
  Country: None (occurrence: None)
  Receive Date: 20091023
  Receipt Date: 20091009
  Transmission Date: 20100525
  Serious: Yes (Other)
  Sender: FDA-Public Use
  Company Number: US-ELI_LILLY_AND_COMPANY-US200910002358

PATIENT
  Sex: Male

DRUGS (2)
  1. ZYPREXA [Suspect]
     Dosage: 17 MG, DAILY (1/D)
  2. ZYPREXA [Suspect]
     Dosage: 10 MG, DAILY (1/D)

REACTIONS (2)
  - COMPULSIVE SEXUAL BEHAVIOUR [None]
  - OFF LABEL USE [None]
